FAERS Safety Report 4457624-5 (Version None)
Quarter: 2004Q3

REPORT INFORMATION
  Report Type: 
  Country: None (occurrence: None)
  Receive Date: 20040922
  Receipt Date: 20040908
  Transmission Date: 20050211
  Serious: Yes (Hospitalization)
  Sender: FDA-Public Use
  Company Number: 2004-DE-04489DE

PATIENT
  Age: 67 Year
  Sex: Male

DRUGS (1)
  1. MICARDIS [Suspect]
     Indication: HYPERTENSION
     Dosage: PO
     Route: 048

REACTIONS (3)
  - BILE DUCT STONE [None]
  - CHEST PAIN [None]
  - CHOLANGITIS [None]
